FAERS Safety Report 11915060 (Version 1)
Quarter: 2016Q1

REPORT INFORMATION
  Report Type: Spontaneous
  Country: US (occurrence: US)
  Receive Date: 20160113
  Receipt Date: 20160113
  Transmission Date: 20160526
  Serious: Yes (Other)
  Sender: FDA-Public Use
  Company Number: US-ROCHE-1691248

PATIENT
  Age: 62 Year
  Sex: Female

DRUGS (1)
  1. TAMIFLU [Suspect]
     Active Substance: OSELTAMIVIR PHOSPHATE
     Indication: INFLUENZA
     Route: 065
     Dates: start: 20160104, end: 20160106

REACTIONS (8)
  - Nightmare [Recovered/Resolved]
  - Anxiety [Not Recovered/Not Resolved]
  - Night sweats [Recovered/Resolved]
  - Insomnia [Recovered/Resolved]
  - Rash [Unknown]
  - Treatment noncompliance [Unknown]
  - Psychomotor hyperactivity [Unknown]
  - Discomfort [Unknown]

NARRATIVE: CASE EVENT DATE: 20160104
